FAERS Safety Report 24705940 (Version 1)
Quarter: 2024Q4

REPORT INFORMATION
  Report Type: Report from Study
  Country: DE (occurrence: DE)
  Receive Date: 20241206
  Receipt Date: 20241206
  Transmission Date: 20250115
  Serious: Yes (Other)
  Sender: PFIZER
  Company Number: DE-009507513-2411DEU010796

PATIENT
  Age: 42 Year
  Sex: Female

DRUGS (3)
  1. EPIRUBICIN HYDROCHLORIDE [Suspect]
     Active Substance: EPIRUBICIN HYDROCHLORIDE
     Indication: Triple negative breast cancer
     Dosage: 90 MG
     Dates: start: 20240319, end: 20240523
  2. PEMBROLIZUMAB [Suspect]
     Active Substance: PEMBROLIZUMAB
     Indication: Triple negative breast cancer
     Dosage: 200MG/Q3W
     Dates: start: 20240319, end: 20240409
  3. CYCLOPHOSPHAMIDE [Suspect]
     Active Substance: CYCLOPHOSPHAMIDE
     Indication: Triple negative breast cancer
     Dosage: 600 MG
     Dates: start: 20240319, end: 20240523

REACTIONS (3)
  - Radiotherapy [Recovered/Resolved]
  - Immune-mediated hepatitis [Unknown]
  - Immune-mediated thyroiditis [Unknown]

NARRATIVE: CASE EVENT DATE: 20240409
